FAERS Safety Report 7955111-0 (Version None)
Quarter: 2011Q4

REPORT INFORMATION
  Report Type: 
  Country: None (occurrence: None)
  Receive Date: 20111129
  Receipt Date: 20111118
  Transmission Date: 20120403
  Serious: Yes (Other)
  Sender: FDA-Public Use
  Company Number: 1113895

PATIENT
  Age: 66 Year
  Sex: Female

DRUGS (2)
  1. CARBOPLATIN [Suspect]
     Indication: LUNG ADENOCARCINOMA
     Dates: start: 20100818, end: 20101020
  2. NAVELBINE [Suspect]
     Indication: LUNG ADENOCARCINOMA
     Dosage: ORAL
     Route: 048
     Dates: start: 20100818, end: 20101020

REACTIONS (2)
  - NEUTROPENIC SEPSIS [None]
  - ALOPECIA [None]
